FAERS Safety Report 21933248 (Version 2)
Quarter: 2023Q2

REPORT INFORMATION
  Report Type: Report from Study
  Country: US (occurrence: US)
  Receive Date: 20230131
  Receipt Date: 20230405
  Transmission Date: 20230722
  Serious: Yes (Hospitalization)
  Sender: FDA-Public Use
  Company Number: US-ABBVIE-4288035

PATIENT
  Age: 62 Year
  Sex: Female
  Weight: 75.749 kg

DRUGS (1)
  1. HUMIRA [Suspect]
     Active Substance: ADALIMUMAB
     Indication: Psoriatic arthropathy
     Dosage: CITRATE FREE/EVENT CESSATION DATE FOR ADVERSE FOOD REACTION SHOULD BE AT LEAST 2023.
     Route: 058
     Dates: start: 2018

REACTIONS (3)
  - Irritable bowel syndrome [Recovering/Resolving]
  - Food allergy [Unknown]
  - Adverse food reaction [Recovered/Resolved]

NARRATIVE: CASE EVENT DATE: 20230101
